FAERS Safety Report 4746570-5 (Version None)
Quarter: 2005Q3

REPORT INFORMATION
  Report Type: 
  Country: None (occurrence: None)
  Receive Date: 20050816
  Receipt Date: 20050816
  Transmission Date: 20060218
  Serious: Yes (Disabling, Other)
  Sender: FDA-Public Use
  Company Number: None

PATIENT
  Sex: Female
  Weight: 68.0396 kg

DRUGS (4)
  1. FAMVIR [Suspect]
     Indication: HERPES VIRUS INFECTION
     Dosage: 500 MG 3 X DA ORAL
     Route: 048
     Dates: start: 20030101, end: 20040101
  2. PREMARIN [Concomitant]
  3. NORVASC [Concomitant]
  4. TOPRAL [Concomitant]

REACTIONS (7)
  - CHILLS [None]
  - DRUG INEFFECTIVE [None]
  - HYPERAESTHESIA [None]
  - HYPERSENSITIVITY [None]
  - MALAISE [None]
  - PHARMACEUTICAL PRODUCT COMPLAINT [None]
  - POOR QUALITY DRUG ADMINISTERED [None]
